FAERS Safety Report 6782807-9 (Version None)
Quarter: 2010Q2

REPORT INFORMATION
  Report Type: 
  Country: None (occurrence: None)
  Receive Date: 20100616
  Receipt Date: 20100531
  Transmission Date: 20101027
  Serious: Yes (Hospitalization, Disabling)
  Sender: FDA-Public Use
  Company Number: 2010PV000017

PATIENT
  Age: 61 Year
  Sex: Female

DRUGS (22)
  1. DEPOCYT [Suspect]
     Indication: CENTRAL NERVOUS SYSTEM LYMPHOMA
     Dosage: 50 MG; 3X; INTH
     Route: 037
     Dates: start: 20090701, end: 20090701
  2. METHOTREXATE [Suspect]
     Indication: DIFFUSE LARGE B-CELL LYMPHOMA
     Dosage: 4000 MG/M**2; ; IV
     Route: 042
     Dates: start: 20090404, end: 20090430
  3. IFOSFAMIDE [Suspect]
     Indication: DIFFUSE LARGE B-CELL LYMPHOMA
     Dosage: 2000 MG/M**2; ; IV
     Route: 042
     Dates: start: 20090406, end: 20090504
  4. DEXAMETHASONE [Suspect]
     Indication: DIFFUSE LARGE B-CELL LYMPHOMA
     Dosage: 8 MG; PO
     Route: 048
     Dates: start: 20090409, end: 20090627
  5. CYTARABINE [Suspect]
     Indication: DIFFUSE LARGE B-CELL LYMPHOMA
     Dosage: 3000 MG/M**2; ; IV
     Route: 042
     Dates: start: 20090523, end: 20090524
  6. THIOTEPA [Suspect]
     Indication: DIFFUSE LARGE B-CELL LYMPHOMA
     Dosage: 40 ; ; IV
     Route: 042
     Dates: start: 20090524, end: 20090626
  7. CARMUSTINE [Suspect]
     Dosage: 400 MG/M**2; 1X; IV
     Route: 042
     Dates: start: 20090624, end: 20090624
  8. ETOPOSIDE [Suspect]
     Indication: DIFFUSE LARGE B-CELL LYMPHOMA
     Dosage: 150 MG/M**2; ; IV
     Route: 042
     Dates: start: 20090624, end: 20090626
  9. METOCLOPRAMIDE [Concomitant]
  10. LEUKOVORIN [Concomitant]
  11. PANTOPRAZOLE [Concomitant]
  12. LEVOFLOXACIN [Concomitant]
  13. AMPHOTERICIN B [Concomitant]
  14. POVIDONE IOD [Concomitant]
  15. POTASSIUM [Concomitant]
  16. DEXAMETHASONE ACETATE [Concomitant]
  17. FILGRASTIM [Concomitant]
  18. HEPARIN [Concomitant]
  19. PREDNISOLONE [Concomitant]
  20. CLEMASTINE FUMARATE [Concomitant]
  21. RANITIDINE [Concomitant]
  22. METRONIDAZOLE [Concomitant]

REACTIONS (7)
  - BLOOD CREATININE DECREASED [None]
  - CREATININE RENAL CLEARANCE INCREASED [None]
  - FAECAL INCONTINENCE [None]
  - MUSCULAR WEAKNESS [None]
  - OEDEMA PERIPHERAL [None]
  - PERIPHERAL MOTOR NEUROPATHY [None]
  - URINARY INCONTINENCE [None]
